FAERS Safety Report 16213065 (Version 2)
Quarter: 2019Q3

REPORT INFORMATION
  Report Type: Spontaneous
  Country: FR (occurrence: FR)
  Receive Date: 20190418
  Receipt Date: 20190812
  Transmission Date: 20191004
  Serious: Yes (Other)
  Sender: FDA-Public Use
  Company Number: FR-PFIZER INC-2019161790

PATIENT
  Age: 84 Year
  Sex: Female
  Weight: 43 kg

DRUGS (9)
  1. TAHOR [Concomitant]
     Active Substance: ATORVASTATIN CALCIUM
     Indication: ARTERIOSCLEROSIS
     Dosage: 1 DF, QD
     Route: 048
     Dates: start: 2005
  2. CORDARONE [Suspect]
     Active Substance: AMIODARONE HYDROCHLORIDE
     Indication: ATRIAL FIBRILLATION
  3. DIFFU K [Concomitant]
     Active Substance: POTASSIUM CHLORIDE
     Dosage: 2 DF, QD
     Route: 065
  4. INEXIUM [ESOMEPRAZOLE MAGNESIUM] [Concomitant]
     Active Substance: ESOMEPRAZOLE MAGNESIUM
     Dosage: 20 MG, QD
     Route: 065
     Dates: start: 1993
  5. CORTANCYL [Concomitant]
     Active Substance: PREDNISONE
     Dosage: 3 DF, QD
     Route: 065
     Dates: start: 1993
  6. XANAX [Concomitant]
     Active Substance: ALPRAZOLAM
     Dosage: 2 / DAY
     Route: 065
  7. PREVISCAN [FLUINDIONE] [Concomitant]
     Active Substance: FLUINDIONE
     Indication: VALVULOPLASTY CARDIAC
     Dosage: 1/4 PER DAY FOR 7 YEARS, VARIABLE DOSAGE
     Route: 048
     Dates: start: 2007
  8. LASILIX [FUROSEMIDE] [Concomitant]
     Active Substance: FUROSEMIDE
     Dosage: 1 DF, QD
  9. CORDARONE [Suspect]
     Active Substance: AMIODARONE HYDROCHLORIDE
     Indication: ARRHYTHMIA
     Dosage: 1/2 TABLET 5 DAYS/ WEEK FOR 1 MONTH; SCORED/ DIVISIBLE
     Route: 048
     Dates: start: 20190125

REACTIONS (2)
  - Conjunctival haemorrhage [Recovered/Resolved]
  - International normalised ratio increased [Recovered/Resolved]

NARRATIVE: CASE EVENT DATE: 201904
